FAERS Safety Report 23136877 (Version 2)
Quarter: 2023Q4

REPORT INFORMATION
  Report Type: Spontaneous
  Country: US (occurrence: US)
  Receive Date: 20231102
  Receipt Date: 20231110
  Transmission Date: 20240110
  Serious: Yes (Other)
  Sender: FDA-Public Use
  Company Number: US-AMGEN-USASP2023191367

PATIENT

DRUGS (7)
  1. RITUXIMAB [Suspect]
     Active Substance: RITUXIMAB
     Indication: Systemic lupus erythematosus
     Dosage: UNK
     Route: 065
  2. MYCOPHENOLATE MOFETIL [Concomitant]
     Active Substance: MYCOPHENOLATE MOFETIL
     Indication: Systemic lupus erythematosus
     Route: 065
  3. AZATHIOPRINE [Concomitant]
     Active Substance: AZATHIOPRINE
     Indication: Systemic lupus erythematosus
     Dosage: UNK
     Route: 065
  4. CYCLOPHOSPHAMIDE [Concomitant]
     Active Substance: CYCLOPHOSPHAMIDE
     Indication: Systemic lupus erythematosus
     Dosage: UNK
     Route: 065
  5. METHOTREXATE [Concomitant]
     Active Substance: METHOTREXATE
     Indication: Systemic lupus erythematosus
     Route: 065
  6. TACROLIMUS [Concomitant]
     Active Substance: TACROLIMUS
     Indication: Systemic lupus erythematosus
     Route: 065
  7. BELIMUMAB [Concomitant]
     Active Substance: BELIMUMAB
     Indication: Systemic lupus erythematosus
     Route: 065

REACTIONS (17)
  - Myocardial infarction [Unknown]
  - Angina pectoris [Unknown]
  - Cardiac failure congestive [Unknown]
  - Cerebrovascular accident [Unknown]
  - Lupus nephritis [Unknown]
  - End stage renal disease [Unknown]
  - Antiphospholipid syndrome [Unknown]
  - Psychiatric symptom [Unknown]
  - Fatigue [Unknown]
  - Cardiovascular disorder [Unknown]
  - Coronary artery disease [Unknown]
  - Intermittent claudication [Unknown]
  - Peripheral arterial occlusive disease [Unknown]
  - Pericarditis lupus [Unknown]
  - Lung disorder [Unknown]
  - Raynaud^s phenomenon [Unknown]
  - Off label use [Unknown]
